FAERS Safety Report 13638273 (Version 3)
Quarter: 2017Q3

REPORT INFORMATION
  Report Type: Spontaneous
  Country: US (occurrence: US)
  Receive Date: 20170609
  Receipt Date: 20170811
  Transmission Date: 20171127
  Serious: No
  Sender: FDA-Public Use
  Company Number: US-PFIZER INC-2017222859

PATIENT
  Age: 50 Year
  Sex: Female

DRUGS (1)
  1. XELJANZ XR [Suspect]
     Active Substance: TOFACITINIB CITRATE
     Indication: RHEUMATOID ARTHRITIS
     Dosage: 11 MG, DAILY
     Route: 048
     Dates: start: 20110421

REACTIONS (7)
  - Fatigue [Recovered/Resolved]
  - Dry eye [Recovered/Resolved]
  - Sinus congestion [Recovered/Resolved]
  - Condition aggravated [Unknown]
  - Lacrimation increased [Recovered/Resolved]
  - Myalgia [Unknown]
  - Alopecia [Unknown]
